FAERS Safety Report 6871832-5 (Version None)
Quarter: 2010Q3

REPORT INFORMATION
  Report Type: 
  Country: None (occurrence: None)
  Receive Date: 20100723
  Receipt Date: 20100713
  Transmission Date: 20110219
  Serious: No
  Sender: FDA-Public Use
  Company Number: US-JNJFOC-20100704169

PATIENT
  Sex: Female
  Weight: 70.76 kg

DRUGS (5)
  1. FENTANYL [Suspect]
     Indication: BACK PAIN
     Route: 062
  2. FENTANYL [Suspect]
     Route: 062
  3. PERCOCET [Concomitant]
     Indication: PAIN
     Route: 048
  4. XANAX [Concomitant]
     Indication: ANXIETY
     Route: 048
  5. LYRICA [Concomitant]
     Route: 048

REACTIONS (2)
  - BLOOD CHOLESTEROL INCREASED [None]
  - DRUG DOSE OMISSION [None]
